FAERS Safety Report 4380515-5 (Version None)
Quarter: 2004Q2

REPORT INFORMATION
  Report Type: 
  Country: None (occurrence: None)
  Receive Date: 20040614
  Receipt Date: 20031111
  Transmission Date: 20050107
  Serious: Yes (Disabling)
  Sender: FDA-Public Use
  Company Number: WAES 0311USA01378

PATIENT
  Age: 73 Year
  Sex: Female
  Weight: 83.4619 kg

DRUGS (9)
  1. COZAAR [Suspect]
     Indication: DIABETES MELLITUS NON-INSULIN-DEPENDENT
     Dosage: 100 MG/DAILY/PO; 50 MG/DAILY/PO;  50 MG/DAILY/PO
     Route: 048
     Dates: end: 20031006
  2. COZAAR [Suspect]
     Indication: HYPERTENSION
     Dosage: 100 MG/DAILY/PO; 50 MG/DAILY/PO;  50 MG/DAILY/PO
     Route: 048
     Dates: end: 20031006
  3. COZAAR [Suspect]
     Indication: DIABETES MELLITUS NON-INSULIN-DEPENDENT
     Dosage: 100 MG/DAILY/PO; 50 MG/DAILY/PO;  50 MG/DAILY/PO
     Route: 048
     Dates: start: 20031007, end: 20031010
  4. COZAAR [Suspect]
     Indication: HYPERTENSION
     Dosage: 100 MG/DAILY/PO; 50 MG/DAILY/PO;  50 MG/DAILY/PO
     Route: 048
     Dates: start: 20031007, end: 20031010
  5. COZAAR [Suspect]
     Indication: DIABETES MELLITUS NON-INSULIN-DEPENDENT
     Dosage: 100 MG/DAILY/PO; 50 MG/DAILY/PO;  50 MG/DAILY/PO
     Route: 048
     Dates: start: 20031011
  6. COZAAR [Suspect]
     Indication: HYPERTENSION
     Dosage: 100 MG/DAILY/PO; 50 MG/DAILY/PO;  50 MG/DAILY/PO
     Route: 048
     Dates: start: 20031011
  7. CELEBREX [Concomitant]
  8. GLUCOTROL XL [Concomitant]
  9. ZOCOR [Concomitant]

REACTIONS (1)
  - ORTHOSTATIC HYPOTENSION [None]
